FAERS Safety Report 7490027-8 (Version None)
Quarter: 2011Q2

REPORT INFORMATION
  Report Type: 
  Country: None (occurrence: None)
  Receive Date: 20110519
  Receipt Date: 20110512
  Transmission Date: 20111010
  Serious: Yes (Death, Other)
  Sender: FDA-Public Use
  Company Number: US-GENZYME-THYM-1002467

PATIENT

DRUGS (6)
  1. FLUCONAZOLE [Concomitant]
     Indication: INFECTION PROPHYLAXIS
  2. METHOTREXATE [Suspect]
     Indication: PROPHYLAXIS AGAINST GRAFT VERSUS HOST DISEASE
     Dosage: 8 MG/M2, UNK
  3. THYMOGLOBULIN [Suspect]
     Indication: BONE MARROW CONDITIONING REGIMEN
  4. ACYCLOVIR [Concomitant]
     Indication: INFECTION PROPHYLAXIS
  5. TACROLIMUS [Suspect]
     Indication: PROPHYLAXIS AGAINST GRAFT VERSUS HOST DISEASE
  6. CYCLOPHOSPHAMIDE [Suspect]
     Indication: BONE MARROW CONDITIONING REGIMEN

REACTIONS (4)
  - SERUM SICKNESS [None]
  - FEBRILE NEUTROPENIA [None]
  - ZYGOMYCOSIS [None]
  - RENAL IMPAIRMENT [None]
